FAERS Safety Report 23725923 (Version 1)
Quarter: 2024Q2

REPORT INFORMATION
  Report Type: Spontaneous
  Country: US (occurrence: US)
  Receive Date: 20240410
  Receipt Date: 20240410
  Transmission Date: 20240716
  Serious: No
  Sender: FDA-Public Use
  Company Number: US-JNJFOC-20240423067

PATIENT
  Sex: Female
  Weight: 68.9 kg

DRUGS (10)
  1. UPTRAVI [Suspect]
     Active Substance: SELEXIPAG
     Indication: Pulmonary arterial hypertension
     Route: 048
  2. ORENITRAM [Suspect]
     Active Substance: TREPROSTINIL
     Indication: Pulmonary arterial hypertension
     Dosage: 0.25 MG AND 0.125
     Route: 048
     Dates: start: 20220526
  3. ORENITRAM [Suspect]
     Active Substance: TREPROSTINIL
     Dosage: 0.5 MG IN MORNING AND AFTERNOON AND 0.625 MG IN NIGHT
     Route: 048
  4. VITAMINS [Concomitant]
     Active Substance: VITAMINS
  5. EPIVIR [Concomitant]
     Active Substance: LAMIVUDINE
  6. NEVIRAPINE [Concomitant]
     Active Substance: NEVIRAPINE
  7. ELIQUIS [Concomitant]
     Active Substance: APIXABAN
  8. SILDENAFIL CITRATE [Concomitant]
     Active Substance: SILDENAFIL CITRATE
  9. TORSEMIDE [Concomitant]
     Active Substance: TORSEMIDE
  10. POTASSIUM PHOSPHATES [Concomitant]
     Active Substance: POTASSIUM PHOSPHATE, DIBASIC\POTASSIUM PHOSPHATE, MONOBASIC

REACTIONS (3)
  - Decreased appetite [Unknown]
  - Fluid retention [Unknown]
  - Malaise [Unknown]
